FAERS Safety Report 23195689 (Version 2)
Quarter: 2023Q4

REPORT INFORMATION
  Report Type: Spontaneous
  Country: US (occurrence: US)
  Receive Date: 20231117
  Receipt Date: 20231120
  Transmission Date: 20240110
  Serious: No
  Sender: FDA-Public Use
  Company Number: US-002147023-NVSC2023US244539

PATIENT
  Sex: Female

DRUGS (2)
  1. MEKINIST [Suspect]
     Active Substance: TRAMETINIB DIMETHYL SULFOXIDE
     Indication: Gastrointestinal melanoma
     Dosage: 2 MG, QD
     Route: 048
     Dates: start: 202310
  2. TAFINLAR [Suspect]
     Active Substance: DABRAFENIB MESYLATE
     Indication: Gastrointestinal melanoma
     Dosage: 150 MG, Q12H
     Route: 048
     Dates: start: 202310

REACTIONS (5)
  - Rash [Unknown]
  - Nausea [Unknown]
  - Pyrexia [Unknown]
  - Abdominal discomfort [Unknown]
  - Pruritus [Unknown]
